FAERS Safety Report 7518518-1 (Version None)
Quarter: 2011Q2

REPORT INFORMATION
  Report Type: 
  Country: None (occurrence: None)
  Receive Date: 20110602
  Receipt Date: 20110516
  Transmission Date: 20111010
  Serious: No
  Sender: FDA-Public Use
  Company Number: US-B.I. PHARMACEUTICALS,INC./RIDGEFIELD-2011-BP-13281BP

PATIENT
  Sex: Female

DRUGS (4)
  1. CARDIZEM [Concomitant]
     Indication: HYPERTENSION
     Dosage: 240 MG
     Route: 048
  2. DIGOXIN [Concomitant]
     Indication: ATRIAL FIBRILLATION
     Dosage: 0.25 MG
     Route: 048
  3. OXYGEN [Concomitant]
     Indication: SLEEP APNOEA SYNDROME
  4. PRADAXA [Suspect]
     Indication: ATRIAL FIBRILLATION
     Dosage: 300 MG
     Route: 048
     Dates: start: 20110314

REACTIONS (3)
  - OEDEMA PERIPHERAL [None]
  - DIZZINESS [None]
  - JOINT SWELLING [None]
